FAERS Safety Report 14036954 (Version 3)
Quarter: 2017Q4

REPORT INFORMATION
  Report Type: Report from Study
  Country: BR (occurrence: BR)
  Receive Date: 20171004
  Receipt Date: 20171019
  Transmission Date: 20180321
  Serious: Yes (Hospitalization, Other)
  Sender: FDA-Public Use
  Company Number: BR-BIOGEN-2017BI00441752

PATIENT
  Age: 33 Year
  Sex: Female

DRUGS (4)
  1. AVONEX [Suspect]
     Active Substance: INTERFERON BETA-1A
     Indication: MULTIPLE SCLEROSIS
     Route: 030
     Dates: start: 201503
  2. OMEPRASEC [Concomitant]
     Indication: PRODUCT USED FOR UNKNOWN INDICATION
     Route: 065
  3. AVONEX [Suspect]
     Active Substance: INTERFERON BETA-1A
     Route: 030
     Dates: end: 201708
  4. AVONEX [Suspect]
     Active Substance: INTERFERON BETA-1A
     Route: 030
     Dates: start: 20150715, end: 201707

REACTIONS (8)
  - Nausea [Unknown]
  - Dyspnoea [Unknown]
  - Helicobacter gastritis [Not Recovered/Not Resolved]
  - Malaise [Unknown]
  - Multiple sclerosis [Not Recovered/Not Resolved]
  - Nuclear magnetic resonance imaging abnormal [Not Recovered/Not Resolved]
  - Pain [Unknown]
  - Facial paralysis [Unknown]

NARRATIVE: CASE EVENT DATE: 201609
